FAERS Safety Report 6303802-X (Version None)
Quarter: 2009Q3

REPORT INFORMATION
  Report Type: 
  Country: None (occurrence: None)
  Receive Date: 20090810
  Receipt Date: 20090709
  Transmission Date: 20100115
  Serious: Yes (Hospitalization)
  Sender: FDA-Public Use
  Company Number: JP-MERCK-0906USA05527

PATIENT
  Age: 66 Year
  Sex: Male

DRUGS (1)
  1. DECADRON [Suspect]
     Indication: LIVER DISORDER
     Route: 048

REACTIONS (1)
  - DIABETIC KETOACIDOSIS [None]
